FAERS Safety Report 14999011 (Version 1)
Quarter: 2018Q2

REPORT INFORMATION
  Report Type: Report from Study
  Country: IT (occurrence: IT)
  Receive Date: 20180612
  Receipt Date: 20180612
  Transmission Date: 20180711
  Serious: Yes (Death)
  Sender: FDA-Public Use
  Company Number: IT-TEVA-2018-IT-904213

PATIENT
  Age: 63 Year
  Sex: Male

DRUGS (15)
  1. VALSARTAN. [Interacting]
     Active Substance: VALSARTAN
     Route: 065
  2. SIMVASTATIN. [Suspect]
     Active Substance: SIMVASTATIN
     Route: 065
  3. CLONIDINE. [Concomitant]
     Active Substance: CLONIDINE
     Route: 065
  4. PARICALCITOL. [Interacting]
     Active Substance: PARICALCITOL
     Route: 065
  5. CALCIUM [Concomitant]
     Active Substance: CALCIUM
     Route: 065
  6. ACETYLSALICYLIC ACID [Interacting]
     Active Substance: ASPIRIN
     Route: 065
  7. TORASEMIDE [Interacting]
     Active Substance: TORSEMIDE
     Route: 065
  8. QUINAPRIL. [Interacting]
     Active Substance: QUINAPRIL
     Route: 065
  9. PREGABALIN. [Interacting]
     Active Substance: PREGABALIN
     Route: 065
  10. INSULIN [Interacting]
     Active Substance: INSULIN NOS
     Route: 065
  11. TAMSULOSIN [Concomitant]
     Active Substance: TAMSULOSIN
     Route: 065
  12. GEMFIBROZIL. [Interacting]
     Active Substance: GEMFIBROZIL
     Route: 065
  13. HYDROCHLOROTHIAZIDE. [Concomitant]
     Active Substance: HYDROCHLOROTHIAZIDE
     Route: 065
  14. INFLUENZA VIRUS VACCINE TRIVALENT [Concomitant]
     Active Substance: INFLUENZA VIRUS VACCINE TRIVALENT TYPE A+B
     Indication: IMMUNISATION
     Route: 065
  15. FISH OIL [Concomitant]
     Active Substance: FISH OIL
     Route: 065

REACTIONS (16)
  - Cardiopulmonary failure [Fatal]
  - Chromaturia [Fatal]
  - Supraventricular tachycardia [Fatal]
  - Pain in extremity [Fatal]
  - Renal impairment [Fatal]
  - Rhabdomyolysis [Fatal]
  - Pneumonia [Fatal]
  - Mobility decreased [Fatal]
  - Cardiac failure [Fatal]
  - Sepsis [Fatal]
  - Hypoaesthesia [Fatal]
  - Arrhythmia [Fatal]
  - Hypotonia [Fatal]
  - Nephropathy [Fatal]
  - Paralysis [Fatal]
  - Drug interaction [Fatal]
